FAERS Safety Report 8248381-5 (Version None)
Quarter: 2012Q1

REPORT INFORMATION
  Report Type: 
  Country: None (occurrence: None)
  Receive Date: 20120330
  Receipt Date: 20120319
  Transmission Date: 20120608
  Serious: Yes (Other)
  Sender: FDA-Public Use
  Company Number: CHPA2012US005315

PATIENT
  Age: 55 Year
  Sex: Female

DRUGS (2)
  1. EXCEDRIN EXTRA STRENGTH TABLETS [Suspect]
     Dosage: UNK , UNK
     Route: 048
     Dates: end: 20020101
  2. EXCEDRIN EXTRA STRENGTH TABLETS [Suspect]
     Indication: HERNIA PAIN
     Dosage: 2 DF, Q4H OR SO, PRN
     Route: 048

REACTIONS (4)
  - HERNIA [None]
  - INAPPROPRIATE SCHEDULE OF DRUG ADMINISTRATION [None]
  - OFF LABEL USE [None]
  - THERAPEUTIC RESPONSE UNEXPECTED [None]
